FAERS Safety Report 24005450 (Version 1)
Quarter: 2024Q2

REPORT INFORMATION
  Report Type: Spontaneous
  Country: US (occurrence: None)
  Receive Date: 20240622
  Receipt Date: 20240622
  Transmission Date: 20240716
  Serious: Yes (Hospitalization)
  Sender: FDA-Public Use
  Company Number: None

PATIENT
  Sex: Female
  Weight: 210.6 kg

DRUGS (1)
  1. DULOXETINE HYDROCHLORIDE [Suspect]
     Active Substance: DULOXETINE HYDROCHLORIDE
     Dates: end: 20240607

REACTIONS (3)
  - Small intestinal obstruction [None]
  - Procedural failure [None]
  - Intestinal ischaemia [None]

NARRATIVE: CASE EVENT DATE: 20240607
